FAERS Safety Report 22153215 (Version 1)
Quarter: 2023Q1

REPORT INFORMATION
  Report Type: Spontaneous
  Country: JP (occurrence: JP)
  Receive Date: 20230329
  Receipt Date: 20230329
  Transmission Date: 20230418
  Serious: Yes (Death)
  Sender: FDA-Public Use
  Company Number: JP-MALLINCKRODT-MNK202300728

PATIENT

DRUGS (8)
  1. NITRIC OXIDE [Suspect]
     Active Substance: NITRIC OXIDE
     Indication: Pulmonary hypertension
     Dosage: 20 PPM
     Route: 055
  2. NITRIC OXIDE [Suspect]
     Active Substance: NITRIC OXIDE
     Dosage: 15 PPM
     Route: 055
  3. NITRIC OXIDE [Suspect]
     Active Substance: NITRIC OXIDE
     Dosage: 10 PPM
     Route: 055
  4. NITRIC OXIDE [Suspect]
     Active Substance: NITRIC OXIDE
     Dosage: 5 PPM
     Route: 055
  5. NITRIC OXIDE [Suspect]
     Active Substance: NITRIC OXIDE
     Dosage: 4PPM
     Route: 055
  6. NITRIC OXIDE [Suspect]
     Active Substance: NITRIC OXIDE
     Dosage: 3 PPM
     Route: 055
  7. NITRIC OXIDE [Suspect]
     Active Substance: NITRIC OXIDE
     Dosage: 2 PPM
     Route: 055
  8. NITRIC OXIDE [Suspect]
     Active Substance: NITRIC OXIDE
     Dosage: 1 PPM
     Route: 055

REACTIONS (1)
  - Multiple organ dysfunction syndrome [Fatal]
